FAERS Safety Report 9670295 (Version 1)
Quarter: 2013Q4

REPORT INFORMATION
  Report Type: Spontaneous
  Country: GB (occurrence: GB)
  Receive Date: 20131105
  Receipt Date: 20131105
  Transmission Date: 20140711
  Serious: Yes (Disabling)
  Sender: FDA-Public Use
  Company Number: GB-TEVA-440348ISR

PATIENT
  Age: 25 Year
  Sex: Female
  Weight: 98 kg

DRUGS (9)
  1. MONTELUKAST [Suspect]
     Dosage: 10 MILLIGRAM DAILY;
     Dates: start: 20121129, end: 20130221
  2. SERETIDE [Concomitant]
     Dates: start: 20121031, end: 20130219
  3. SALBUTAMOL [Concomitant]
     Dates: start: 20121031, end: 20130219
  4. QUETIAPINE [Concomitant]
     Dates: start: 20121129, end: 20130114
  5. MIRTAZAPINE [Concomitant]
     Dates: start: 20121129
  6. OMEPRAZOLE [Concomitant]
     Dates: start: 20121129
  7. FERROUS SULPHATE [Concomitant]
     Dates: start: 20130107
  8. FOLIC ACID [Concomitant]
     Dates: start: 20130107
  9. CLARITHROMYCIN [Concomitant]
     Dates: start: 20130122, end: 20130129

REACTIONS (1)
  - Pulmonary fibrosis [Recovering/Resolving]
